FAERS Safety Report 5375386-4 (Version None)
Quarter: 2007Q2

REPORT INFORMATION
  Report Type: 
  Country: None (occurrence: None)
  Receive Date: 20070629
  Receipt Date: 20070620
  Transmission Date: 20071010
  Serious: Yes (Other)
  Sender: FDA-Public Use
  Company Number: FR-PFIZER INC-2007027204

PATIENT
  Sex: Female
  Weight: 98 kg

DRUGS (6)
  1. LYRICA [Suspect]
     Indication: NEURALGIA
     Dosage: DAILY DOSE:75MG-FREQ:BID
     Route: 048
     Dates: start: 20060630, end: 20070225
  2. LYRICA [Suspect]
     Indication: NEUROPATHY
  3. DI-ANTALVIC [Concomitant]
     Indication: PAIN
     Route: 048
  4. ROSUVASTATIN [Concomitant]
     Indication: HYPERCHOLESTEROLAEMIA
     Route: 048
  5. VOLTAREN [Concomitant]
     Indication: PAIN
     Route: 048
  6. FUROSEMIDE [Concomitant]
     Indication: HYPERTENSION
     Route: 048

REACTIONS (3)
  - CONFUSIONAL STATE [None]
  - DISTURBANCE IN ATTENTION [None]
  - WEIGHT INCREASED [None]
